FAERS Safety Report 13650223 (Version 1)
Quarter: 2017Q2

REPORT INFORMATION
  Report Type: Report from Study
  Country: US (occurrence: US)
  Receive Date: 20170614
  Receipt Date: 20170614
  Transmission Date: 20170830
  Serious: Yes (Death)
  Sender: FDA-Public Use
  Company Number: US-TORRENT-00002857

PATIENT
  Age: 76 Year
  Sex: Male

DRUGS (2)
  1. CALCIUM [Suspect]
     Active Substance: CALCIUM
  2. AMLODIPINE BESYLATE. [Suspect]
     Active Substance: AMLODIPINE BESYLATE

REACTIONS (2)
  - Medication error [Fatal]
  - Toxicity to various agents [Fatal]
